FAERS Safety Report 15614558 (Version 3)
Quarter: 2019Q3

REPORT INFORMATION
  Report Type: Spontaneous
  Country: US (occurrence: US)
  Receive Date: 20181113
  Receipt Date: 20190712
  Transmission Date: 20191004
  Serious: Yes (Hospitalization, Other)
  Sender: FDA-Public Use
  Company Number: US-ASTRAZENECA-2018SF47293

PATIENT
  Age: 19757 Day
  Sex: Male
  Weight: 99.8 kg

DRUGS (63)
  1. ATORVASTATIN [Concomitant]
     Active Substance: ATORVASTATIN
  2. FLUTICASONE. [Concomitant]
     Active Substance: FLUTICASONE
  3. MINOXIDIL. [Concomitant]
     Active Substance: MINOXIDIL
  4. DOCQLACE [Concomitant]
     Active Substance: DOCUSATE SODIUM
  5. DICYCLOMINE [Concomitant]
     Active Substance: DICYCLOMINE HYDROCHLORIDE
  6. AMITRIPTYLINE [Concomitant]
     Active Substance: AMITRIPTYLINE
  7. IBUPROFEN. [Concomitant]
     Active Substance: IBUPROFEN
  8. PROVIGIL [Concomitant]
     Active Substance: MODAFINIL
  9. CEPHALEXIN. [Concomitant]
     Active Substance: CEPHALEXIN
  10. NIFEDIPINE. [Concomitant]
     Active Substance: NIFEDIPINE
  11. NEXIUM [Suspect]
     Active Substance: ESOMEPRAZOLE MAGNESIUM
     Indication: GASTROOESOPHAGEAL REFLUX DISEASE
     Route: 048
     Dates: start: 20101020
  12. LOSARTAN. [Concomitant]
     Active Substance: LOSARTAN
  13. SIMVASTATIN. [Concomitant]
     Active Substance: SIMVASTATIN
  14. OSELTAMIVIR [Concomitant]
     Active Substance: OSELTAMIVIR
  15. PREVPAC [Concomitant]
     Active Substance: AMOXICILLIN\CLARITHROMYCIN\LANSOPRAZOLE
  16. MELOXICAM. [Concomitant]
     Active Substance: MELOXICAM
  17. PLAVIX [Concomitant]
     Active Substance: CLOPIDOGREL BISULFATE
  18. METOPROLOL SUCCINATE. [Concomitant]
     Active Substance: METOPROLOL SUCCINATE
  19. TRAMADOL. [Concomitant]
     Active Substance: TRAMADOL
  20. NEXIUM [Suspect]
     Active Substance: ESOMEPRAZOLE MAGNESIUM
     Indication: GASTROOESOPHAGEAL REFLUX DISEASE
     Route: 048
     Dates: start: 201212, end: 201310
  21. NEXIUM [Suspect]
     Active Substance: ESOMEPRAZOLE MAGNESIUM
     Indication: GASTROOESOPHAGEAL REFLUX DISEASE
     Route: 048
     Dates: start: 20090826
  22. VITAMIN D2 [Concomitant]
     Active Substance: ERGOCALCIFEROL
  23. AZITHROMYCIN ANHYDROUS. [Concomitant]
     Active Substance: AZITHROMYCIN ANHYDROUS
  24. COLCHICINE. [Concomitant]
     Active Substance: COLCHICINE
  25. CIALIS [Concomitant]
     Active Substance: TADALAFIL
  26. NAPROXEN. [Concomitant]
     Active Substance: NAPROXEN
  27. TRAMADOL. [Concomitant]
     Active Substance: TRAMADOL
  28. METOPROLOL TARTRATE. [Concomitant]
     Active Substance: METOPROLOL TARTRATE
  29. ALLOPURINOL. [Concomitant]
     Active Substance: ALLOPURINOL
  30. PROMETHAZINE [Concomitant]
     Active Substance: PROMETHAZINE HYDROCHLORIDE
  31. LACTULOSE. [Concomitant]
     Active Substance: LACTULOSE
  32. PREDNISONE. [Concomitant]
     Active Substance: PREDNISONE
  33. PROCHLORPERAZINE. [Concomitant]
     Active Substance: PROCHLORPERAZINE
  34. TERBINAFINE. [Concomitant]
     Active Substance: TERBINAFINE
  35. CLARITHROMYCIN. [Concomitant]
     Active Substance: CLARITHROMYCIN
  36. RANITIDINE. [Concomitant]
     Active Substance: RANITIDINE
  37. CATAPRES [Concomitant]
     Active Substance: CLONIDINE HYDROCHLORIDE
  38. NEXIUM [Suspect]
     Active Substance: ESOMEPRAZOLE MAGNESIUM
     Indication: GASTROOESOPHAGEAL REFLUX DISEASE
     Route: 048
     Dates: start: 2012, end: 2013
  39. NIFEDIPINE. [Concomitant]
     Active Substance: NIFEDIPINE
  40. METHYLPREDNISOLONE. [Concomitant]
     Active Substance: METHYLPREDNISOLONE
  41. NEPHRO VITE RX [Concomitant]
     Active Substance: ASCORBIC ACID\BIOTIN\CALCIUM PANTOTHENATE\CYANOCOBALAMIN\FOLIC ACID\NIACINAMIDE\PYRIDOXINE HYDROCHLORIDE\RIBOFLAVIN\THIAMINE MONONITRATE
  42. KIONEX [Concomitant]
     Active Substance: SODIUM POLYSTYRENE SULFONATE
  43. AMOX-CLAV [Concomitant]
     Active Substance: AMOXICILLIN\CLAVULANATE POTASSIUM
  44. EPIPEN [Concomitant]
     Active Substance: EPINEPHRINE
  45. FUROSEMIDE. [Concomitant]
     Active Substance: FUROSEMIDE
  46. PROTONIX [Concomitant]
     Active Substance: PANTOPRAZOLE SODIUM
  47. HYDROCODONE/ACETAMINOPHEN [Concomitant]
     Active Substance: ACETAMINOPHEN\HYDROCODONE
  48. VIAGRA [Concomitant]
     Active Substance: SILDENAFIL CITRATE
  49. OMEPRAZOLE. [Concomitant]
     Active Substance: OMEPRAZOLE
  50. FLUVIRIN NOS [Concomitant]
     Active Substance: INFLUENZA VIRUS VACCINE
  51. ASPIRIN. [Concomitant]
     Active Substance: ASPIRIN
  52. ECOTRIN [Concomitant]
     Active Substance: ASPIRIN
  53. LISINOPRIL. [Concomitant]
     Active Substance: LISINOPRIL
  54. DOXAZOSIN [Concomitant]
     Active Substance: DOXAZOSIN MESYLATE
  55. KETOROLAC [Concomitant]
     Active Substance: KETOROLAC TROMETHAMINE
  56. PENICILLIN VK [Concomitant]
     Active Substance: PENICILLIN V POTASSIUM
  57. AMOXICILLIN. [Concomitant]
     Active Substance: AMOXICILLIN
  58. OXYCODONE/ACETAMINOPHEN [Concomitant]
     Active Substance: ACETAMINOPHEN\OXYCODONE HYDROCHLORIDE
  59. PROAIR HFA [Concomitant]
     Active Substance: ALBUTEROL SULFATE
  60. SILVER SULFADIAZINE. [Concomitant]
     Active Substance: SILVER SULFADIAZINE
  61. CALCITRIOL. [Concomitant]
     Active Substance: CALCITRIOL
  62. CRESTOR [Concomitant]
     Active Substance: ROSUVASTATIN CALCIUM
  63. AMLODIPINE BESYLATE. [Concomitant]
     Active Substance: AMLODIPINE BESYLATE

REACTIONS (5)
  - Acute kidney injury [Not Recovered/Not Resolved]
  - End stage renal disease [Not Recovered/Not Resolved]
  - Renal failure [Unknown]
  - Chronic kidney disease [Not Recovered/Not Resolved]
  - Chronic kidney disease-mineral and bone disorder [Unknown]

NARRATIVE: CASE EVENT DATE: 20130827
